FAERS Safety Report 16832446 (Version 1)
Quarter: 2019Q4

REPORT INFORMATION
  Report Type: Spontaneous
  Country: US (occurrence: US)
  Receive Date: 20190920
  Receipt Date: 20190920
  Transmission Date: 20200122
  Serious: Yes (Other)
  Sender: FDA-Public Use
  Company Number: None

PATIENT
  Age: 76 Year
  Sex: Male
  Weight: 99 kg

DRUGS (1)
  1. XARELTO [Suspect]
     Active Substance: RIVAROXABAN
     Indication: ANTICOAGULANT THERAPY
     Dosage: ?          QUANTITY:1 TABLET(S);?
     Route: 048
     Dates: start: 20190618, end: 20190901

REACTIONS (8)
  - Therapy cessation [None]
  - Bone operation [None]
  - Asthenia [None]
  - Product complaint [None]
  - Presyncope [None]
  - Diarrhoea haemorrhagic [None]
  - Ankle operation [None]
  - Product prescribing issue [None]

NARRATIVE: CASE EVENT DATE: 20190625
